FAERS Safety Report 8405845-9 (Version None)
Quarter: 2012Q2

REPORT INFORMATION
  Report Type: 
  Country: None (occurrence: None)
  Receive Date: 20120604
  Receipt Date: 20120530
  Transmission Date: 20120825
  Serious: No
  Sender: FDA-Public Use
  Company Number: US-PFIZER INC-2012088952

PATIENT
  Sex: Female

DRUGS (2)
  1. GEODON [Suspect]
     Dosage: 80 MG, UNK
  2. GEODON [Suspect]
     Indication: MAJOR DEPRESSION
     Dosage: 20 MG, UNK

REACTIONS (1)
  - DRUG INTOLERANCE [None]
